FAERS Safety Report 5222700-6 (Version None)
Quarter: 2007Q1

REPORT INFORMATION
  Report Type: 
  Country: None (occurrence: None)
  Receive Date: 20070129
  Receipt Date: 20051221
  Transmission Date: 20070707
  Serious: No
  Sender: FDA-Public Use
  Company Number: US-GLAXOSMITHKLINE-A0586627A

PATIENT

DRUGS (4)
  1. COMBIVIR [Suspect]
     Indication: HIV INFECTION
     Route: 048
  2. KALETRA [Suspect]
  3. MYCOBUTIN [Suspect]
  4. UNKNOWN [Concomitant]

REACTIONS (1)
  - SEXUAL DYSFUNCTION [None]
